FAERS Safety Report 17081257 (Version 1)
Quarter: 2019Q4

REPORT INFORMATION
  Report Type: Spontaneous
  Country: US (occurrence: US)
  Receive Date: 20191126
  Receipt Date: 20191126
  Transmission Date: 20200122
  Serious: Yes (Hospitalization, Other)
  Sender: FDA-Public Use
  Company Number: None

PATIENT
  Age: 61 Year
  Sex: Male
  Weight: 85.5 kg

DRUGS (7)
  1. SITAGLIPTAN 50MG [Concomitant]
  2. BENAZEPRIL 40 MG [Concomitant]
     Active Substance: BENAZEPRIL HYDROCHLORIDE
  3. METOPROLOL SUCCINATE 50 MG DAILY [Concomitant]
  4. METFORMIN 1000 MG TWICE DAILY [Concomitant]
  5. ROSUVASTATIN 20 MG [Concomitant]
  6. EMPAGLIFLOZIN [Suspect]
     Active Substance: EMPAGLIFLOZIN
     Indication: TYPE 2 DIABETES MELLITUS
     Route: 048
     Dates: end: 20191119
  7. AMLODIPINE [Concomitant]
     Active Substance: AMLODIPINE BESYLATE

REACTIONS (5)
  - Euglycaemic diabetic ketoacidosis [None]
  - Hyperglycaemia [None]
  - Treatment noncompliance [None]
  - Anion gap increased [None]
  - Starvation ketoacidosis [None]

NARRATIVE: CASE EVENT DATE: 20191120
